FAERS Safety Report 17462385 (Version 3)
Quarter: 2020Q1

REPORT INFORMATION
  Report Type: Spontaneous
  Country: JP (occurrence: JP)
  Receive Date: 20200226
  Receipt Date: 20200313
  Transmission Date: 20200409
  Serious: No
  Sender: FDA-Public Use
  Company Number: JP-ABBVIE-19K-087-2935316-00

PATIENT
  Age: 73 Year
  Sex: Female

DRUGS (3)
  1. DUODOPA [Suspect]
     Active Substance: CARBIDOPA\LEVODOPA
     Indication: PARKINSON^S DISEASE
     Route: 050
     Dates: start: 201908
  2. SUVOREXANT. [Concomitant]
     Active Substance: SUVOREXANT
     Indication: PRODUCT USED FOR UNKNOWN INDICATION
  3. CARBIDOPA HYDRATE AND LEVODOPA [Concomitant]
     Indication: PRODUCT USED FOR UNKNOWN INDICATION

REACTIONS (12)
  - Stoma site pain [Unknown]
  - Off label use [Unknown]
  - Therapeutic product effect decreased [Unknown]
  - Dizziness [Unknown]
  - Insomnia [Unknown]
  - Back pain [Unknown]
  - Neck pain [Unknown]
  - Stoma site hypergranulation [Not Recovered/Not Resolved]
  - Medical device pain [Unknown]
  - Device occlusion [Unknown]
  - Gait disturbance [Unknown]
  - Fatigue [Unknown]

NARRATIVE: CASE EVENT DATE: 2019
